FAERS Safety Report 4994461-7 (Version None)
Quarter: 2006Q1

REPORT INFORMATION
  Report Type: 
  Country: None (occurrence: None)
  Receive Date: 20060313
  Receipt Date: 20051109
  Transmission Date: 20060701
  Serious: No
  Sender: FDA-Public Use
  Company Number: 2005-BP-18627BP

PATIENT
  Age: 51 Year
  Sex: Male
  Weight: 73.03 kg

DRUGS (7)
  1. SPIRIVA [Suspect]
     Indication: CHRONIC OBSTRUCTIVE PULMONARY DISEASE
     Dosage: 18 MCG (18 MCG,1 IN 1 D),IH
     Dates: start: 20050831, end: 20051001
  2. SPIRIVA [Suspect]
     Indication: RESPIRATORY DISORDER
     Dosage: 18 MCG (18 MCG,1 IN 1 D),IH
     Dates: start: 20050831, end: 20051001
  3. ADVAIR (SERETIDE) [Concomitant]
  4. CRIXIVAN [Concomitant]
  5. COMBIVIR [Concomitant]
  6. NEXIUM [Concomitant]
  7. FOSINOPRIL SODIUM [Concomitant]

REACTIONS (2)
  - CHEST PAIN [None]
  - PAIN IN EXTREMITY [None]
